FAERS Safety Report 4784781-3 (Version None)
Quarter: 2005Q3

REPORT INFORMATION
  Report Type: 
  Country: None (occurrence: None)
  Receive Date: 20050928
  Receipt Date: 20050913
  Transmission Date: 20060218
  Serious: No
  Sender: FDA-Public Use
  Company Number: US_0504116336

PATIENT
  Age: 21 Year
  Sex: 0
  Weight: 80 kg

DRUGS (2)
  1. ZYPREXA [Suspect]
     Indication: SCHIZOPHRENIA
     Dosage: 15 MG DAY
     Dates: start: 19980901, end: 20010401
  2. RISPERDAL [Concomitant]

REACTIONS (19)
  - ALBUMIN URINE PRESENT [None]
  - BLOOD TRIGLYCERIDES INCREASED [None]
  - DIABETES MELLITUS INADEQUATE CONTROL [None]
  - DIABETES MELLITUS NON-INSULIN-DEPENDENT [None]
  - HAEMORRHOIDAL HAEMORRHAGE [None]
  - HAEMORRHOIDS [None]
  - HIGH DENSITY LIPOPROTEIN DECREASED [None]
  - HYPERHOMOCYSTEINAEMIA [None]
  - HYPERLIPIDAEMIA [None]
  - LOW DENSITY LIPOPROTEIN INCREASED [None]
  - METABOLIC SYNDROME [None]
  - MUSCLE INJURY [None]
  - PAIN IN EXTREMITY [None]
  - PANCREATIC INSUFFICIENCY [None]
  - PROCEDURAL PAIN [None]
  - RECTAL HAEMORRHAGE [None]
  - STRABISMUS [None]
  - TREATMENT NONCOMPLIANCE [None]
  - WEIGHT INCREASED [None]
